FAERS Safety Report 19742111 (Version 1)
Quarter: 2021Q3

REPORT INFORMATION
  Report Type: Spontaneous
  Country: JP (occurrence: JP)
  Receive Date: 20210824
  Receipt Date: 20210824
  Transmission Date: 20211014
  Serious: Yes (Hospitalization)
  Sender: FDA-Public Use
  Company Number: JP-DSJP-DSJ-2020-104465

PATIENT
  Age: 70 Year
  Sex: Male

DRUGS (6)
  1. HEPARIN [Concomitant]
     Active Substance: HEPARIN SODIUM
     Dosage: 10000?15000U/DAY
     Route: 065
  2. SLONNON HI INJECTION 10MG/2ML [Suspect]
     Active Substance: ARGATROBAN
     Indication: VASCULAR STENT THROMBOSIS
     Dosage: 60MG/DAY
     Route: 065
  3. CILOSTAZOL. [Concomitant]
     Active Substance: CILOSTAZOL
     Dosage: 200MG/DAY
     Route: 065
  4. EFIENT [Suspect]
     Active Substance: PRASUGREL HYDROCHLORIDE
     Dosage: 3.75 MG, QD
     Route: 048
  5. CLOPIDOGREL [Concomitant]
     Active Substance: CLOPIDOGREL BISULFATE
     Dosage: 75MG/DAY
     Route: 048
  6. EFIENT [Suspect]
     Active Substance: PRASUGREL HYDROCHLORIDE
     Indication: VASCULAR STENT THROMBOSIS
     Dosage: 20 MG, QD
     Route: 048

REACTIONS (2)
  - Vascular stent thrombosis [Recovering/Resolving]
  - Off label use [Unknown]
